FAERS Safety Report 9428256 (Version 1)
Quarter: 2013Q3

REPORT INFORMATION
  Report Type: Spontaneous
  Country: US (occurrence: US)
  Receive Date: 20130730
  Receipt Date: 20130730
  Transmission Date: 20140515
  Serious: No
  Sender: FDA-Public Use
  Company Number: US-GLAXOSMITHKLINE-A1013793A

PATIENT
  Age: 4 Year
  Sex: Male

DRUGS (3)
  1. ZANTAC [Suspect]
     Indication: ILL-DEFINED DISORDER
     Dosage: 52MG TWICE PER DAY
     Route: 048
     Dates: start: 201210, end: 201211
  2. ZANTAC [Suspect]
     Route: 048
     Dates: start: 201211
  3. NO CONCURRENT MEDICATION [Concomitant]

REACTIONS (1)
  - Dysgeusia [Recovered/Resolved]
